FAERS Safety Report 13828980 (Version 2)
Quarter: 2020Q2

REPORT INFORMATION
  Report Type: Spontaneous
  Country: US (occurrence: US)
  Receive Date: 20170803
  Receipt Date: 20200616
  Transmission Date: 20200713
  Serious: Yes (Other)
  Sender: FDA-Public Use
  Company Number: US-BRISTOL-MYERS SQUIBB COMPANY-BMS-2017-067162

PATIENT
  Sex: Male
  Weight: 95.25 kg

DRUGS (1)
  1. OPDIVO [Suspect]
     Active Substance: NIVOLUMAB
     Indication: SMALL CELL LUNG CANCER
     Dosage: UNK, Q2WK
     Route: 042
     Dates: start: 2017

REACTIONS (4)
  - Tooth infection [Unknown]
  - Anaemia [Unknown]
  - Lumbar vertebral fracture [Unknown]
  - Intentional product use issue [Unknown]
